FAERS Safety Report 10204645 (Version 1)
Quarter: 2014Q2

REPORT INFORMATION
  Report Type: Spontaneous
  Country: US (occurrence: None)
  Receive Date: 20140527
  Receipt Date: 20140527
  Transmission Date: 20141212
  Serious: Yes (Hospitalization)
  Sender: FDA-Public Use
  Company Number: None

PATIENT
  Age: 23 Year
  Sex: Female

DRUGS (4)
  1. OXYCODONE-ACETAMINOPHEN [Suspect]
     Indication: PAIN
     Route: 048
     Dates: end: 20120403
  2. ACETAMINOPHEN [Concomitant]
  3. MINERAL OIL [Concomitant]
  4. OXYTOCIN [Concomitant]

REACTIONS (3)
  - Swollen tongue [None]
  - Lip oedema [None]
  - Exposure during pregnancy [None]
